FAERS Safety Report 9782579 (Version 22)
Quarter: 2015Q4

REPORT INFORMATION
  Report Type: Report from Study
  Country: AU (occurrence: AU)
  Receive Date: 20131226
  Receipt Date: 20151109
  Transmission Date: 20160305
  Serious: Yes (Other)
  Sender: FDA-Public Use
  Company Number: PHHY2013AU150972

PATIENT
  Age: 38 Year
  Sex: Female

DRUGS (4)
  1. ATROPT [Concomitant]
     Indication: PRODUCT USED FOR UNKNOWN INDICATION
     Dosage: 1 %, BID
     Route: 065
  2. CLOZARIL [Suspect]
     Active Substance: CLOZAPINE
     Indication: SCHIZOPHRENIA
     Dosage: 150 OT
     Route: 048
     Dates: start: 20090722
  3. CLOZARIL [Suspect]
     Active Substance: CLOZAPINE
     Dosage: 100 MG, NOCTE
     Route: 048
     Dates: start: 20150703
  4. LEVLEN [Concomitant]
     Active Substance: ETHINYL ESTRADIOL\LEVONORGESTREL
     Indication: PRODUCT USED FOR UNKNOWN INDICATION
     Dosage: 1 DF, MANE
     Route: 065

REACTIONS (28)
  - Neutrophil count increased [Not Recovered/Not Resolved]
  - Haematocrit increased [Recovered/Resolved]
  - Haematocrit increased [Recovered/Resolved]
  - Lymphocyte count increased [Recovered/Resolved]
  - Lymphocyte count increased [Recovered/Resolved]
  - Haemoglobin increased [Unknown]
  - Lymphocyte count increased [Recovered/Resolved]
  - Haematocrit increased [Recovered/Resolved]
  - Blood triglycerides increased [Unknown]
  - Lymphocyte count increased [Recovered/Resolved]
  - Platelet count increased [Recovered/Resolved]
  - Dizziness [Not Recovered/Not Resolved]
  - Sedation [Unknown]
  - Haemoglobin increased [Recovered/Resolved]
  - Vitamin D decreased [Unknown]
  - Lymphocyte count increased [Recovered/Resolved]
  - Lymphocyte count increased [Unknown]
  - White blood cell count increased [Not Recovered/Not Resolved]
  - Blood bilirubin decreased [Unknown]
  - Lymphocyte count increased [Recovered/Resolved]
  - Monocyte count increased [Recovered/Resolved]
  - C-reactive protein increased [Unknown]
  - Haematocrit increased [Recovered/Resolved]
  - Haematocrit increased [Unknown]
  - Sinus tachycardia [Recovered/Resolved]
  - Lymphocyte count increased [Recovered/Resolved]
  - Hypersomnia [Unknown]
  - Platelet count increased [Recovered/Resolved]

NARRATIVE: CASE EVENT DATE: 20121203
